FAERS Safety Report 15346349 (Version 1)
Quarter: 2018Q3

REPORT INFORMATION
  Report Type: Spontaneous
  Country: US (occurrence: US)
  Receive Date: 20180904
  Receipt Date: 20180904
  Transmission Date: 20181010
  Serious: No
  Sender: FDA-Public Use
  Company Number: US-TEVA-2018-US-949887

PATIENT
  Age: 13 Year
  Sex: Male
  Weight: 70 kg

DRUGS (3)
  1. PROAIR HFA [Suspect]
     Active Substance: ALBUTEROL SULFATE
     Indication: ATYPICAL PNEUMONIA
     Dosage: 2 PUFFS EVERY 6 HOURS
     Route: 065
     Dates: start: 20180822, end: 20180824
  2. PREDNISONE. [Concomitant]
     Active Substance: PREDNISONE
     Indication: ATYPICAL PNEUMONIA
     Route: 065
  3. ZITHROMAX [Concomitant]
     Active Substance: AZITHROMYCIN DIHYDRATE
     Route: 065

REACTIONS (5)
  - Lip swelling [Unknown]
  - Feeding disorder [Unknown]
  - Gingival bleeding [Unknown]
  - Lip haemorrhage [Unknown]
  - Pain [Unknown]

NARRATIVE: CASE EVENT DATE: 20180824
